FAERS Safety Report 7578447-4 (Version None)
Quarter: 2011Q2

REPORT INFORMATION
  Report Type: 
  Country: None (occurrence: None)
  Receive Date: 20110622
  Receipt Date: 20110616
  Transmission Date: 20111010
  Serious: Yes (Other)
  Sender: FDA-Public Use
  Company Number: UKP10000058

PATIENT
  Age: 68 Year
  Sex: Male
  Weight: 59 kg

DRUGS (25)
  1. CARVEDILOL [Concomitant]
  2. ISOSORBIDE MONONITRATE [Concomitant]
  3. POTASSIUM CHLORIDE [Concomitant]
  4. ASACOL [Suspect]
     Indication: CROHN'S DISEASE
     Dosage: 2/DAY, ORAL
     Route: 048
     Dates: start: 20070924, end: 20100305
  5. FUROSEMIDE [Concomitant]
  6. LOPERAMIDE HYDROCHLORIDE (LOPERAMIDE3 HYDROCHLORIDE) [Concomitant]
  7. MAGNESIUM GLYCEROPHOSPHATE (MAGNESIUM GLYCEROPHOSPHATE) [Concomitant]
  8. OILATUM PLUS (BENZALKONIUM CHLORIDE, LIGHT LIQUID PARAFFIN, TRICLOSAN) [Concomitant]
  9. DOMPERIDONE (DOMPERIDONE) [Concomitant]
  10. ONDANSETRON HYDROCHLORIDE [Concomitant]
  11. RAMIPRIL [Concomitant]
  12. CIMETIDINE [Concomitant]
  13. PROCAL (SODIUM FLUORIDE) [Concomitant]
  14. ADCAL-D3 (CALCIUM CARBONATE, COLECALCIFEROL) [Concomitant]
     Dates: start: 20100108
  15. ATORVASTATIN [Concomitant]
     Dates: start: 20080421
  16. BETAMETHASONE VALERATE [Concomitant]
  17. PREDFOAM (PREDNISOLONE SODIUM SULFOBENZOATE) [Concomitant]
  18. SUCRALFATE [Concomitant]
  19. CODEINE PHOSPHATE (CODEINE PHOSPHATE) [Concomitant]
  20. NICORANDIL (NICORANDIL) [Concomitant]
  21. A/H1N1 INFLUENZA PANDEMIC VACCINE (A/H1N1 INFLUENZA PANDEMIC VACCINE) [Suspect]
     Route: 048
  22. DIORALYTE (GLUCOSE, POTASSIUM CHLORIDE, SODIUM BICARBONATE, SODIUM CHL [Concomitant]
  23. CLOPIDOGREL [Concomitant]
  24. OMACOR (DOCOSAHEXANOIC ACID, EICOSAPENTAE3NOIC ACID) [Concomitant]
  25. PANTOPRAZOLE [Concomitant]

REACTIONS (3)
  - INFLUENZA [None]
  - HAEMOLYSIS [None]
  - DRUG INTERACTION [None]
